FAERS Safety Report 6723684-1 (Version None)
Quarter: 2010Q2

REPORT INFORMATION
  Report Type: 
  Country: None (occurrence: None)
  Receive Date: 20100513
  Receipt Date: 20100506
  Transmission Date: 20101027
  Serious: Yes (Hospitalization, Other)
  Sender: FDA-Public Use
  Company Number: GB-JNJFOC-20090808488

PATIENT
  Age: 40 Year
  Sex: Male
  Weight: 105 kg

DRUGS (10)
  1. RISPERIDONE [Suspect]
     Indication: DRUG USE FOR UNKNOWN INDICATION
     Route: 065
  2. ABILIFY [Suspect]
     Indication: SCHIZOAFFECTIVE DISORDER
     Route: 048
  3. ABILIFY [Suspect]
     Indication: METABOLIC SYNDROME
     Route: 048
  4. DULOXETINE HYDROCHLORIDE [Suspect]
     Indication: DRUG USE FOR UNKNOWN INDICATION
     Route: 048
  5. MIRTAZAPINE [Suspect]
     Indication: DRUG USE FOR UNKNOWN INDICATION
     Route: 065
  6. QUETIAPINE [Suspect]
     Indication: DRUG USE FOR UNKNOWN INDICATION
     Route: 065
  7. SODIUM VALPROATE [Suspect]
     Indication: DRUG USE FOR UNKNOWN INDICATION
     Route: 065
  8. DRUG USED IN DIABETES [Concomitant]
     Indication: TYPE 2 DIABETES MELLITUS
     Route: 048
  9. EFFEXOR [Concomitant]
     Indication: DEPRESSION
     Route: 048
  10. LITHIUM CARBONATE [Concomitant]
     Indication: DRUG USE FOR UNKNOWN INDICATION
     Route: 048

REACTIONS (5)
  - HYPOTHYROIDISM [None]
  - LIVER FUNCTION TEST ABNORMAL [None]
  - METABOLIC SYNDROME [None]
  - SCHIZOAFFECTIVE DISORDER [None]
  - WEIGHT INCREASED [None]
